FAERS Safety Report 6651508-X (Version None)
Quarter: 2010Q1

REPORT INFORMATION
  Report Type: 
  Country: None (occurrence: None)
  Receive Date: 20100325
  Receipt Date: 20100315
  Transmission Date: 20100710
  Serious: Yes (Other)
  Sender: FDA-Public Use
  Company Number: FR-ROCHE-691820

PATIENT
  Sex: Female
  Weight: 16.3 kg

DRUGS (5)
  1. AVASTIN [Suspect]
     Indication: RHABDOMYOSARCOMA
     Dosage: PER CYCLE, STRENGTH: 25 MG/ML, FORM: INJECTABLE SOLUTION
     Route: 042
     Dates: start: 20091208, end: 20100212
  2. VINCRISTINE [Suspect]
     Indication: RHABDOMYOSARCOMA
     Dosage: VINCRISTINE TEVA, PER CYCLE
     Route: 040
     Dates: start: 20091215, end: 20100122
  3. VINCRISTINE [Suspect]
     Route: 040
     Dates: start: 20100212
  4. DOXORUBICIN HCL [Concomitant]
     Dosage: ON DAY 1 AND DAY 4, FOR FOUR CYCLES
     Dates: start: 20091208, end: 20100213
  5. IFOSFAMIDE [Concomitant]
     Dosage: ON DAY 1 AND DAY 4, FOR FOUR CYCLES
     Dates: start: 20091208, end: 20100213

REACTIONS (4)
  - DERMATITIS BULLOUS [None]
  - IMPAIRED HEALING [None]
  - RASH [None]
  - SKIN EXFOLIATION [None]
